FAERS Safety Report 18207317 (Version 1)
Quarter: 2020Q3

REPORT INFORMATION
  Report Type: Report from Study
  Country: US (occurrence: US)
  Receive Date: 20200828
  Receipt Date: 20200828
  Transmission Date: 20201103
  Serious: Yes (Hospitalization, Other)
  Sender: FDA-Public Use
  Company Number: US-ROCHE-2612775

PATIENT
  Age: 62 Year
  Sex: Female
  Weight: 106 kg

DRUGS (30)
  1. ALTEPLASE. [Suspect]
     Active Substance: ALTEPLASE
     Indication: COVID-19
     Dosage: 2 INFUSIONS
     Route: 042
     Dates: start: 20200514, end: 20200516
  2. CALCIUM GLUCONATE;SODIUM CHLORIDE [Concomitant]
     Route: 042
     Dates: start: 20200529
  3. PEPCID [Concomitant]
     Active Substance: FAMOTIDINE
     Route: 065
     Dates: start: 20200529
  4. PROZAC [Concomitant]
     Active Substance: FLUOXETINE HYDROCHLORIDE
     Dosage: 20 MG/5 ML (4 MG/ML) ORAL SOLUTION 20 MG
     Route: 048
     Dates: start: 20200529
  5. OMNIPAQUE [Concomitant]
     Active Substance: IOHEXOL
  6. VANCOCIN [Concomitant]
     Active Substance: VANCOMYCIN HYDROCHLORIDE
     Dosage: VPB IN NORMAL SALINE 250 ML 1500 MG
     Route: 042
  7. MIRALAX [Concomitant]
     Active Substance: POLYETHYLENE GLYCOL 3350
     Route: 065
  8. ROXICODONE [Concomitant]
     Active Substance: OXYCODONE HYDROCHLORIDE
     Dates: start: 20200529
  9. BIO?K PLUS [Concomitant]
     Dosage: 50 BILLION SELL CAPSULE 2 CAPSULE
     Route: 048
     Dates: start: 20200529
  10. PRECEDEX [Concomitant]
     Active Substance: DEXMEDETOMIDINE HYDROCHLORIDE
     Dosage: 4 MCG/ML
     Dates: start: 20200529
  11. SODIUM CHLORIDE 0.9% [Concomitant]
     Active Substance: SODIUM CHLORIDE
     Dosage: 0?500 ML
     Route: 065
  12. PULMOZYME [Concomitant]
     Active Substance: DORNASE ALFA
     Dates: start: 20200529
  13. POTASSIUM CHLORIDE. [Concomitant]
     Active Substance: POTASSIUM CHLORIDE
     Dates: start: 20200529
  14. FLAGYL [Concomitant]
     Active Substance: METRONIDAZOLE\METRONIDAZOLE HYDROCHLORIDE
     Route: 065
  15. HEPARIN [Concomitant]
     Active Substance: HEPARIN SODIUM
     Dosage: 50 UNITS/ML IN D5W
     Route: 065
  16. FENTANYL. [Concomitant]
     Active Substance: FENTANYL
     Dosage: 2500 MCG IN SODIUM CHLORIDE 0.9% 100 ML INFUSION
     Route: 065
  17. VERSED [Concomitant]
     Active Substance: MIDAZOLAM HYDROCHLORIDE
     Dosage: 1 MG/ML INJECTION 2?4 MG
     Route: 065
     Dates: start: 20200529
  18. SEROQUEL [Concomitant]
     Active Substance: QUETIAPINE FUMARATE
     Dates: start: 20200529
  19. SENNA TABS [Concomitant]
     Active Substance: SENNOSIDES A AND B
     Dates: start: 20200529
  20. PRECEDEX [Concomitant]
     Active Substance: DEXMEDETOMIDINE HYDROCHLORIDE
     Dosage: 1000 MCG IN SODIUM CHLORIDE 0.9 % 250 ML INFUSION
     Route: 065
  21. PERIDEX [Concomitant]
     Active Substance: CHLORHEXIDINE GLUCONATE
     Dosage: 0.12 % ORAL SOLUTION 15 ML
     Route: 048
  22. METHADOSE [Concomitant]
     Active Substance: METHADONE HYDROCHLORIDE
     Dosage: 10 MG/ML ORAL SOLUTION
     Route: 048
     Dates: start: 20200529
  23. METHADOSE [Concomitant]
     Active Substance: METHADONE HYDROCHLORIDE
     Dates: start: 20200529
  24. ADVIL [Concomitant]
     Active Substance: IBUPROFEN
     Route: 048
  25. HUMULIN N [Concomitant]
     Active Substance: INSULIN HUMAN
     Dosage: 70/30 INJECTION 18 UNITS
     Route: 065
     Dates: start: 20200529
  26. LEVOPHED [Concomitant]
     Active Substance: NOREPINEPHRINE BITARTRATE
     Dosage: 8 MG/250 ML INFUSION
     Route: 065
  27. LOVENOX [Concomitant]
     Active Substance: ENOXAPARIN SODIUM
     Dates: start: 20200529
  28. LASIX [Concomitant]
     Active Substance: FUROSEMIDE
     Dates: start: 20200529
  29. HUMALOG [Concomitant]
     Active Substance: INSULIN LISPRO
     Dosage: 0?16 UNITS
     Route: 065
     Dates: start: 20200529
  30. TYLENOL [Concomitant]
     Active Substance: ACETAMINOPHEN
     Dosage: 325 MG/10.15 ML ORAL SOLUTION 975 MG
     Route: 065

REACTIONS (5)
  - Bacterial sepsis [Recovered/Resolved]
  - Bacterial test positive [Unknown]
  - Pulmonary embolism [Recovered/Resolved]
  - Empyema [Unknown]
  - Pneumonia [Recovered/Resolved]

NARRATIVE: CASE EVENT DATE: 20200523
